FAERS Safety Report 9572700 (Version 1)
Quarter: 2013Q3

REPORT INFORMATION
  Report Type: Spontaneous
  Country: RO (occurrence: None)
  Receive Date: 20130927
  Receipt Date: 20130927
  Transmission Date: 20140515
  Serious: Yes (Congenital Anomaly, Other)
  Sender: FDA-Public Use
  Company Number: B0925313A

PATIENT
  Sex: 0

DRUGS (2)
  1. LAMIVUDINE-HIV [Suspect]
     Indication: ANTIVIRAL PROPHYLAXIS
     Dosage: TRANSPLACENTARY
     Route: 064
  2. PROTEASE INHIBITOR (UNSPECIFIED) [Suspect]
     Indication: ANTIVIRAL PROPHYLAXIS
     Dosage: TRANSPLACENTARY

REACTIONS (3)
  - Foetal disorder [None]
  - Infection [None]
  - Maternal drugs affecting foetus [None]
